FAERS Safety Report 13878850 (Version 1)
Quarter: 2017Q3

REPORT INFORMATION
  Report Type: Spontaneous
  Country: CA (occurrence: CA)
  Receive Date: 20170817
  Receipt Date: 20170817
  Transmission Date: 20171127
  Serious: Yes (Hospitalization)
  Sender: FDA-Public Use
  Company Number: CA-ASTRAZENECA-2017SE82344

PATIENT
  Age: 25 Year
  Sex: Female
  Weight: 77.1 kg

DRUGS (6)
  1. HYDROXYCHLOROQUINE [Concomitant]
     Active Substance: HYDROXYCHLOROQUINE
     Indication: LUPUS-LIKE SYNDROME
     Dates: start: 2008
  2. VENTOLIN HFA [Concomitant]
     Active Substance: ALBUTEROL SULFATE
     Indication: DYSPNOEA
     Dosage: 100.0UG AS REQUIRED
     Route: 055
     Dates: start: 2005
  3. SYMBICORT [Suspect]
     Active Substance: BUDESONIDE\FORMOTEROL FUMARATE DIHYDRATE
     Indication: SYSTEMIC LUPUS ERYTHEMATOSUS
     Dosage: TWO TIMES A DAY
     Route: 055
     Dates: start: 2005
  4. SEROQUEL [Suspect]
     Active Substance: QUETIAPINE FUMARATE
     Indication: BIPOLAR DISORDER
     Route: 048
     Dates: start: 2016
  5. VALTREX [Concomitant]
     Active Substance: VALACYCLOVIR HYDROCHLORIDE
     Indication: HERPES VIRUS INFECTION
     Dates: start: 2010
  6. SEROQUEL [Suspect]
     Active Substance: QUETIAPINE FUMARATE
     Indication: BIPOLAR DISORDER
     Dosage: QUETIAPINE FUMARATE 12.5 MG
     Route: 065
     Dates: start: 2014

REACTIONS (11)
  - Immune thrombocytopenic purpura [Unknown]
  - Systemic lupus erythematosus [Unknown]
  - Expired product administered [Unknown]
  - Lung disorder [Unknown]
  - Mouth breathing [Not Recovered/Not Resolved]
  - Pancreatic disorder [Unknown]
  - Asthenia [Not Recovered/Not Resolved]
  - Costochondritis [Not Recovered/Not Resolved]
  - Hepatitis [Unknown]
  - Fatigue [Not Recovered/Not Resolved]
  - Asthenia [Not Recovered/Not Resolved]

NARRATIVE: CASE EVENT DATE: 2006
